FAERS Safety Report 10203737 (Version 3)
Quarter: 2014Q3

REPORT INFORMATION
  Report Type: Spontaneous
  Country: US (occurrence: US)
  Receive Date: 20140529
  Receipt Date: 20140703
  Transmission Date: 20150326
  Serious: Yes (Death, Other)
  Sender: FDA-Public Use
  Company Number: US-009507513-1405USA013924

PATIENT
  Age: 83 Year
  Sex: Female
  Weight: 107.39 kg

DRUGS (5)
  1. TEMODAR [Suspect]
     Active Substance: TEMOZOLOMIDE
     Indication: MALIGNANT MELANOMA
     Dosage: 100 MG, DAILY DOSE: 400 MG
     Route: 048
     Dates: start: 20140423, end: 20140527
  2. PERCOCET [Concomitant]
     Active Substance: ACETAMINOPHEN\OXYCODONE HYDROCHLORIDE
     Indication: PAIN
     Dosage: 325 MG, 3 TABS TOTAL DAILY DOSE
     Route: 048
     Dates: start: 20140128
  3. TEMODAR [Suspect]
     Active Substance: TEMOZOLOMIDE
     Dosage: UNK
     Route: 048
     Dates: start: 20140430
  4. PREDNISONE. [Concomitant]
     Active Substance: PREDNISONE
     Dosage: 10 MG, TAPER
     Route: 048
     Dates: start: 20140422, end: 201405
  5. CODEINE (+) GUAIFENESIN [Concomitant]
     Indication: COUGH
     Dosage: 100-10,  60 ML TOTAL DAILY DOSE
     Route: 048
     Dates: start: 20140513

REACTIONS (3)
  - Off label use [Unknown]
  - Lung disorder [Unknown]
  - Malignant neoplasm progression [Fatal]

NARRATIVE: CASE EVENT DATE: 20140527
